FAERS Safety Report 7779365-9 (Version None)
Quarter: 2011Q3

REPORT INFORMATION
  Report Type: 
  Country: None (occurrence: None)
  Receive Date: 20110927
  Receipt Date: 20110916
  Transmission Date: 20111222
  Serious: Yes (Life-Threatening, Other)
  Sender: FDA-Public Use
  Company Number: GR-BIOGENIDEC-2011BI016915

PATIENT
  Age: 44 Year
  Sex: Female
  Weight: 70 kg

DRUGS (5)
  1. EFFEXOR [Concomitant]
  2. TYSABRI [Suspect]
     Indication: MULTIPLE SCLEROSIS
     Route: 042
     Dates: start: 20071204, end: 20110427
  3. MIOREL [Concomitant]
  4. EFFEXOR [Concomitant]
  5. NEURONTIN [Concomitant]

REACTIONS (1)
  - ENDOMETRIAL CANCER [None]
